FAERS Safety Report 16155567 (Version 1)
Quarter: 2019Q2

REPORT INFORMATION
  Report Type: Other
  Country: US (occurrence: US)
  Receive Date: 20190404
  Receipt Date: 20190404
  Transmission Date: 20190711
  Serious: Yes (Life-Threatening)
  Sender: FDA-Public Use
  Company Number: US-STANDARD HOMEOPATHIC COMPANY-2065244

PATIENT
  Sex: Female

DRUGS (4)
  1. BIOPLASMA [Suspect]
     Active Substance: HOMEOPATHICS
     Indication: HEADACHE
     Route: 048
     Dates: start: 20181218, end: 20190218
  2. BIOPLASMA [Suspect]
     Active Substance: HOMEOPATHICS
     Indication: NASOPHARYNGITIS
     Route: 048
     Dates: start: 20181218, end: 20190218
  3. BIOPLASMA [Suspect]
     Active Substance: HOMEOPATHICS
     Indication: TENSION
     Route: 048
     Dates: start: 20181218, end: 20190218
  4. BIOPLASMA [Suspect]
     Active Substance: HOMEOPATHICS
     Indication: FATIGUE
     Route: 048
     Dates: start: 20181218, end: 20190218

REACTIONS (2)
  - Blood iron increased [None]
  - Methaemoglobinaemia [Recovered/Resolved]

NARRATIVE: CASE EVENT DATE: 20190218
